FAERS Safety Report 15000880 (Version 1)
Quarter: 2018Q2

REPORT INFORMATION
  Report Type: Spontaneous
  Country: US (occurrence: US)
  Receive Date: 20180612
  Receipt Date: 20180612
  Transmission Date: 20180711
  Serious: Yes (Other)
  Sender: FDA-Public Use
  Company Number: US-MYLANLABS-2018M1038421

PATIENT
  Sex: Male

DRUGS (2)
  1. KETOCONAZOLE. [Suspect]
     Active Substance: KETOCONAZOLE
     Indication: FUNGAL INFECTION
     Route: 048
  2. FLUCONAZOLE. [Suspect]
     Active Substance: FLUCONAZOLE
     Indication: FUNGAL INFECTION
     Route: 065

REACTIONS (19)
  - Anaphylactic reaction [Unknown]
  - Weight decreased [Recovering/Resolving]
  - Dizziness [Unknown]
  - Burning sensation [Unknown]
  - Food allergy [Unknown]
  - Alcohol intolerance [Unknown]
  - Asthenia [Unknown]
  - Dyspnoea [Unknown]
  - Multiple chemical sensitivity [Unknown]
  - Eyelid disorder [Unknown]
  - Headache [Unknown]
  - Nausea [Unknown]
  - Paraesthesia [Unknown]
  - Flushing [Unknown]
  - Dehydration [Unknown]
  - Tinnitus [Unknown]
  - Hypotension [Unknown]
  - Angioedema [Unknown]
  - Tremor [Unknown]
